FAERS Safety Report 9482765 (Version 1)
Quarter: 2013Q3

REPORT INFORMATION
  Report Type: Spontaneous
  Country: US (occurrence: US)
  Receive Date: 20130828
  Receipt Date: 20130828
  Transmission Date: 20140515
  Serious: Yes (Hospitalization)
  Sender: FDA-Public Use
  Company Number: US-JNJFOC-20130812263

PATIENT
  Age: 50 Year
  Sex: Female
  Weight: 118.39 kg

DRUGS (11)
  1. REMICADE [Suspect]
     Indication: RHEUMATOID ARTHRITIS
     Route: 042
  2. REMICADE [Suspect]
     Indication: RHEUMATOID ARTHRITIS
     Route: 042
     Dates: end: 20130813
  3. REMICADE [Suspect]
     Indication: RHEUMATOID ARTHRITIS
     Route: 042
     Dates: start: 2007, end: 2008
  4. SENNA [Concomitant]
     Indication: CONSTIPATION
     Dosage: AS NEEDED
     Route: 048
     Dates: start: 2008
  5. NEURONTIN [Concomitant]
     Indication: RHEUMATOID ARTHRITIS
     Dosage: AS NEEDED
     Route: 048
     Dates: start: 2002
  6. LEVOTHYROXINE [Concomitant]
     Indication: HYPOTHYROIDISM
     Route: 048
  7. LEVOTHYROXINE [Concomitant]
     Indication: HYPOTHYROIDISM
     Route: 048
  8. CELEXA [Concomitant]
     Indication: DEPRESSION
     Dosage: 175 MCG
     Route: 048
     Dates: start: 2002
  9. SOTALOL HCL [Concomitant]
     Indication: PRODUCT USED FOR UNKNOWN INDICATION
     Dosage: 175 MCG
     Route: 048
     Dates: start: 2002
  10. WARFARIN [Concomitant]
     Indication: PRODUCT USED FOR UNKNOWN INDICATION
     Dosage: 175 MCG
     Route: 048
  11. WARFARIN [Concomitant]
     Indication: PRODUCT USED FOR UNKNOWN INDICATION
     Route: 048

REACTIONS (15)
  - Arthritis [Not Recovered/Not Resolved]
  - Thyroid cancer [Recovered/Resolved]
  - Aphonia [Recovered/Resolved]
  - Myocardial infarction [Recovered/Resolved]
  - Atrial fibrillation [Recovered/Resolved]
  - Infusion related reaction [Recovered/Resolved]
  - Nausea [Recovered/Resolved]
  - Vomiting [Recovered/Resolved]
  - Headache [Recovered/Resolved]
  - Weight fluctuation [Not Recovered/Not Resolved]
  - Ingrowing nail [Recovered/Resolved]
  - Limb injury [Recovered/Resolved]
  - Suture related complication [Not Recovered/Not Resolved]
  - Throat irritation [Recovered/Resolved]
  - Dysstasia [Not Recovered/Not Resolved]
